FAERS Safety Report 26099647 (Version 1)
Quarter: 2025Q4

REPORT INFORMATION
  Report Type: Report from Study
  Country: US (occurrence: None)
  Receive Date: 20251128
  Receipt Date: 20251128
  Transmission Date: 20260117
  Serious: Yes (Other)
  Sender: UCB
  Company Number: US-UCBSA-2025074117

PATIENT
  Age: 22 Year

DRUGS (1)
  1. BRIVARACETAM [Suspect]
     Active Substance: BRIVARACETAM
     Indication: Seizure
     Dosage: 50MG-1 TABLET (50 MG TOTAL) BY MOUTH IN THE MORNING AND 1 TABLET (50MG TOTAL) BEFORE BEDTIME

REACTIONS (6)
  - Seizure [Unknown]
  - Head injury [Unknown]
  - Product availability issue [Unknown]
  - Therapy interrupted [Unknown]
  - Inability to afford medication [Unknown]
  - Insurance issue [Unknown]
